FAERS Safety Report 9719089 (Version 1)
Quarter: 2013Q4

REPORT INFORMATION
  Report Type: Report from Study
  Country: CA (occurrence: CA)
  Receive Date: 20131127
  Receipt Date: 20131127
  Transmission Date: 20140711
  Serious: Yes (Death, Hospitalization, Other)
  Sender: FDA-Public Use
  Company Number: CA-ABBVIE-13P-028-1173954-00

PATIENT
  Age: 82 Year
  Sex: Male
  Weight: 77.18 kg

DRUGS (1)
  1. LUPRON DEPOT [Suspect]
     Indication: PROSTATE CANCER
     Route: 050

REACTIONS (4)
  - Injury [Fatal]
  - Fall [Unknown]
  - Balance disorder [Unknown]
  - General physical health deterioration [Unknown]
